FAERS Safety Report 9432025 (Version 2)
Quarter: 2013Q3

REPORT INFORMATION
  Report Type: Spontaneous
  Country: DE (occurrence: None)
  Receive Date: 20130726
  Receipt Date: 20130807
  Transmission Date: 20140515
  Serious: Yes (Other)
  Sender: FDA-Public Use
  Company Number: FK201302718

PATIENT
  Sex: Female

DRUGS (1)
  1. PROPOFOL [Suspect]
     Indication: SEDATION
     Dosage: 1 IN 1 D
     Dates: start: 20130701, end: 20130701

REACTIONS (5)
  - Pain in extremity [None]
  - Extravasation [None]
  - Sensory loss [None]
  - Motor dysfunction [None]
  - Post procedural complication [None]
